FAERS Safety Report 4681691-7 (Version None)
Quarter: 2005Q2

REPORT INFORMATION
  Report Type: 
  Country: None (occurrence: None)
  Receive Date: 20050603
  Receipt Date: 20050527
  Transmission Date: 20051028
  Serious: Yes (Hospitalization)
  Sender: FDA-Public Use
  Company Number: GB-MERCK-0506GBR00001

PATIENT
  Age: 61 Year
  Sex: Male

DRUGS (5)
  1. ZOCOR [Suspect]
     Route: 048
  2. TELMISARTAN [Suspect]
     Route: 065
     Dates: start: 20010815
  3. BECLOMETHASONE DIPROPIONATE [Suspect]
     Route: 065
  4. ALBUTEROL [Suspect]
     Route: 065
  5. SALMETEROL [Suspect]
     Route: 065

REACTIONS (1)
  - ACUTE MYOCARDIAL INFARCTION [None]
